FAERS Safety Report 20719203 (Version 1)
Quarter: 2022Q2

REPORT INFORMATION
  Report Type: Spontaneous
  Country: KR (occurrence: KR)
  Receive Date: 20220418
  Receipt Date: 20220418
  Transmission Date: 20220721
  Serious: Yes (Other)
  Sender: FDA-Public Use
  Company Number: KR-009507513-2204KOR005839

PATIENT
  Age: 36 Year
  Sex: Male
  Weight: 77 kg

DRUGS (10)
  1. PREVYMIS [Suspect]
     Active Substance: LETERMOVIR
     Indication: Antiviral prophylaxis
     Dosage: UNK, ONCE DAILY; STRENGTH: 480 MG
     Route: 048
     Dates: start: 20210418, end: 20210725
  2. SULFAMETHOXAZOLE\TRIMETHOPRIM [Concomitant]
     Active Substance: SULFAMETHOXAZOLE\TRIMETHOPRIM
     Indication: Prophylaxis
     Dosage: 200 MILLIGRAM, BID
     Route: 048
     Dates: start: 20210429
  3. ZOYLEX [ACICLOVIR] [Concomitant]
     Indication: Antiviral prophylaxis
     Dosage: 300 MILLIGRAM, TID
     Route: 042
     Dates: start: 20210709
  4. CIPOL [CICLOSPORIN] [Concomitant]
     Indication: Prophylaxis against graft versus host disease
     Dosage: 60 MILLIGRAM, QD
     Route: 042
     Dates: start: 20210803
  5. RUXOLITINIB [Concomitant]
     Active Substance: RUXOLITINIB
     Indication: Myelodysplastic syndrome
     Dosage: 10 MILLIGRAM, QD
     Route: 048
     Dates: start: 20210723
  6. PREDISOL [METHYLPREDNISOLONE SODIUM SUCCINATE] [Concomitant]
     Indication: Acute graft versus host disease in intestine
     Dosage: 62.5 MILLIGRAM, QD
     Route: 042
     Dates: start: 20210730
  7. BECLOMETHASONE DIPROPIONATE [Concomitant]
     Active Substance: BECLOMETHASONE DIPROPIONATE
     Indication: Acute graft versus host disease in intestine
     Dosage: 10 MILLIGRAM, QD
     Route: 048
     Dates: start: 20210710
  8. PREPENEM [Concomitant]
     Indication: Bacteraemia
     Dosage: 1000 MILLIGRAM, BID
     Route: 042
     Dates: start: 20210805
  9. ACETYLCYSTEINE [Concomitant]
     Active Substance: ACETYLCYSTEINE
     Indication: Productive cough
     Dosage: 600 MILLIGRAM, TID
     Route: 042
     Dates: start: 20210803
  10. PANTOPRAZOLE SODIUM [Concomitant]
     Active Substance: PANTOPRAZOLE SODIUM
     Indication: Abdominal pain upper
     Dosage: 120 MILLIGRAM, QD
     Route: 042
     Dates: start: 20210805

REACTIONS (2)
  - Cytomegalovirus colitis [Unknown]
  - Drug ineffective [Unknown]

NARRATIVE: CASE EVENT DATE: 20210902
